FAERS Safety Report 16809629 (Version 4)
Quarter: 2019Q4

REPORT INFORMATION
  Report Type: Report from Study
  Country: US (occurrence: US)
  Receive Date: 20190916
  Receipt Date: 20191115
  Transmission Date: 20200122
  Serious: Yes (Hospitalization, Other)
  Sender: FDA-Public Use
  Company Number: US-AMGEN-USASL2019148010

PATIENT
  Age: 57 Year
  Sex: Female

DRUGS (1)
  1. REPATHA [Suspect]
     Active Substance: EVOLOCUMAB
     Indication: HYPERCHOLESTEROLAEMIA
     Dosage: 140 MILLIGRAM, Q2WK
     Route: 065
     Dates: start: 2019

REACTIONS (5)
  - Renal impairment [Unknown]
  - Lymphadenopathy [Unknown]
  - Weight decreased [Unknown]
  - Diverticulitis [Unknown]
  - Chest pain [Unknown]

NARRATIVE: CASE EVENT DATE: 2019
